FAERS Safety Report 4774860-9 (Version None)
Quarter: 2005Q3

REPORT INFORMATION
  Report Type: 
  Country: None (occurrence: None)
  Receive Date: 20050919
  Receipt Date: 20050906
  Transmission Date: 20060218
  Serious: Yes (Disabling, Other)
  Sender: FDA-Public Use
  Company Number: 2005124795

PATIENT
  Sex: Male
  Weight: 95.2554 kg

DRUGS (2)
  1. VIAGRA [Suspect]
     Indication: ERECTILE DYSFUNCTION
     Dosage: ORAL
     Route: 048
  2. EFFEXOR [Concomitant]

REACTIONS (4)
  - FRACTURE [None]
  - INTERVERTEBRAL DISC DISORDER [None]
  - ROAD TRAFFIC ACCIDENT [None]
  - SPINAL FRACTURE [None]
